FAERS Safety Report 12573179 (Version 1)
Quarter: 2016Q3

REPORT INFORMATION
  Report Type: Spontaneous
  Country: US (occurrence: US)
  Receive Date: 20160720
  Receipt Date: 20160720
  Transmission Date: 20161109
  Serious: No
  Sender: FDA-Public Use
  Company Number: US-BAYER-2016-141062

PATIENT
  Age: 55 Year
  Sex: Male
  Weight: 66.21 kg

DRUGS (4)
  1. ALEVE [Suspect]
     Active Substance: NAPROXEN SODIUM
     Indication: ARTHRALGIA
     Dosage: UNK, PRN,FOR THE LAST 4-5 DAYS
  2. ALEVE [Suspect]
     Active Substance: NAPROXEN SODIUM
     Indication: ARTHRALGIA
     Dosage: 2 DF, BID FOR THE FIRST 3-4 DAYS OF USE
     Route: 048
     Dates: start: 20160704
  3. ALEVE [Suspect]
     Active Substance: NAPROXEN SODIUM
     Indication: JOINT SWELLING
     Dosage: 2 DF, QD
     Route: 048
  4. OXYMORPHONE [Suspect]
     Active Substance: OXYMORPHONE

REACTIONS (1)
  - Product use issue [None]

NARRATIVE: CASE EVENT DATE: 20160704
